FAERS Safety Report 11936162 (Version 1)
Quarter: 2016Q1

REPORT INFORMATION
  Report Type: Report from Study
  Country: US (occurrence: US)
  Receive Date: 20160121
  Receipt Date: 20160121
  Transmission Date: 20160526
  Serious: No
  Sender: FDA-Public Use
  Company Number: US-AMGEN-USASL2015132156

PATIENT
  Age: 59 Year
  Sex: Male

DRUGS (3)
  1. DEXAMETHASONE. [Concomitant]
     Active Substance: DEXAMETHASONE
     Dosage: 4 MG, UNK
  2. POMALYST [Concomitant]
     Active Substance: POMALIDOMIDE
     Dosage: 4 MG, UNK
  3. KYPROLIS [Suspect]
     Active Substance: CARFILZOMIB
     Indication: PLASMA CELL MYELOMA
     Dosage: UNK, TWICE WEEKLY ON A 21 DAY CYCLE
     Route: 065
     Dates: start: 201509

REACTIONS (7)
  - Nasopharyngitis [Not Recovered/Not Resolved]
  - Cough [Not Recovered/Not Resolved]
  - Anaemia macrocytic [Unknown]
  - Dyspnoea exertional [Not Recovered/Not Resolved]
  - Off label use [Unknown]
  - Hypersensitivity [Not Recovered/Not Resolved]
  - Fatigue [Not Recovered/Not Resolved]

NARRATIVE: CASE EVENT DATE: 2015
